FAERS Safety Report 9571275 (Version 1)
Quarter: 2013Q3

REPORT INFORMATION
  Report Type: Spontaneous
  Country: US (occurrence: None)
  Receive Date: 20130927
  Receipt Date: 20130927
  Transmission Date: 20140515
  Serious: Yes (Hospitalization, Disabling)
  Sender: FDA-Public Use
  Company Number: None

PATIENT
  Age: 69 Year
  Sex: Female
  Weight: 99.79 kg

DRUGS (2)
  1. CIPROFLOXACIN [Suspect]
     Route: 048
  2. CIPROFLOXACIN [Suspect]
     Indication: GASTROINTESTINAL INFECTION
     Route: 048

REACTIONS (12)
  - Rash [None]
  - Muscle spasms [None]
  - Dyspnoea [None]
  - Tendon rupture [None]
  - Impaired healing [None]
  - Muscle spasms [None]
  - Muscle spasms [None]
  - Visual impairment [None]
  - Skin disorder [None]
  - Fatigue [None]
  - Pain [None]
  - Arthralgia [None]
